FAERS Safety Report 9494254 (Version 2)
Quarter: 2013Q3

REPORT INFORMATION
  Report Type: Spontaneous
  Country: GB (occurrence: GB)
  Receive Date: 20130903
  Receipt Date: 20130903
  Transmission Date: 20140515
  Serious: Yes (Other)
  Sender: FDA-Public Use
  Company Number: GB-ROCHE-1264977

PATIENT
  Age: 61 Year
  Sex: Male

DRUGS (3)
  1. RIBAVIRIN [Suspect]
     Indication: HEPATITIS C
     Route: 048
     Dates: start: 20121017
  2. INCIVO [Suspect]
     Indication: HEPATITIS C
     Route: 048
     Dates: start: 20121017, end: 201212
  3. PEGINTERFERON ALFA-2B [Suspect]
     Indication: HEPATITIS C
     Route: 058
     Dates: start: 20121017

REACTIONS (5)
  - Neutrophil count decreased [Unknown]
  - White blood cell count decreased [Not Recovered/Not Resolved]
  - Haemorrhoids [Not Recovered/Not Resolved]
  - Insomnia [Not Recovered/Not Resolved]
  - Pain in extremity [Not Recovered/Not Resolved]
